FAERS Safety Report 8469362-2 (Version None)
Quarter: 2012Q2

REPORT INFORMATION
  Report Type: 
  Country: None (occurrence: None)
  Receive Date: 20120626
  Receipt Date: 20120620
  Transmission Date: 20120825
  Serious: No
  Sender: FDA-Public Use
  Company Number: US-B.I. PHARMACEUTICALS,INC./RIDGEFIELD-2012-BP-14125BP

PATIENT
  Sex: Male

DRUGS (16)
  1. SERTRALINE HYDROCHLORIDE [Concomitant]
     Indication: PANIC DISORDER
     Dosage: 100 MG
     Route: 048
  2. CALCIUM PLUS D [Concomitant]
     Indication: SUPPLEMENTATION THERAPY
     Dosage: 1000 MG
     Route: 048
  3. METFORMIN HCL [Concomitant]
     Indication: DIABETES MELLITUS
  4. CLARITIN [Concomitant]
     Indication: MULTIPLE ALLERGIES
  5. KETOCONAZOLE [Concomitant]
     Indication: SKIN EXFOLIATION
  6. SPIRIVA [Suspect]
     Indication: CHRONIC OBSTRUCTIVE PULMONARY DISEASE
     Dosage: 18 MCG
     Route: 055
     Dates: start: 20050101
  7. ROSUVASTATIN [Concomitant]
     Indication: BLOOD CHOLESTEROL INCREASED
     Dosage: 10 MG
     Route: 048
  8. GABAPENTIN [Concomitant]
     Indication: NEURALGIA
     Route: 048
  9. ALBUTEROL [Concomitant]
     Indication: CHRONIC OBSTRUCTIVE PULMONARY DISEASE
  10. FORADIL [Concomitant]
     Indication: CHRONIC OBSTRUCTIVE PULMONARY DISEASE
  11. LISINOPRIL [Concomitant]
     Indication: HYPERTENSION
     Dosage: 20 MG
     Route: 048
  12. ASPIRIN [Concomitant]
     Indication: CARDIAC DISORDER
     Dosage: 81 MG
     Route: 048
  13. TRAZODONE HCL [Concomitant]
     Indication: SLEEP DISORDER
     Dosage: 100 MG
     Route: 048
  14. LEVOTHYROXINE [Concomitant]
     Indication: HYPOTHYROIDISM
     Dosage: 0.112 MG
     Route: 048
  15. ASMANEX TWISTHALER [Concomitant]
     Indication: CHRONIC OBSTRUCTIVE PULMONARY DISEASE
  16. TAMSULOSIN HCL [Concomitant]
     Indication: POLLAKIURIA
     Dosage: 0.4 MG
     Route: 048

REACTIONS (5)
  - INTRAOCULAR PRESSURE INCREASED [None]
  - PARAESTHESIA ORAL [None]
  - BURNING SENSATION [None]
  - BLOOD GLUCOSE INCREASED [None]
  - SKIN EXFOLIATION [None]
